FAERS Safety Report 5006853-0 (Version None)
Quarter: 2006Q2

REPORT INFORMATION
  Report Type: 
  Country: None (occurrence: None)
  Receive Date: 20060516
  Receipt Date: 20060504
  Transmission Date: 20061013
  Serious: Yes (Hospitalization)
  Sender: FDA-Public Use
  Company Number: TRP_0771_2006

PATIENT
  Sex: Female
  Weight: 46.7205 kg

DRUGS (2)
  1. RIBASPHERE [Suspect]
     Indication: HEPATITIS C
     Dosage: VAR QDAY PO
     Route: 048
  2. PEGASYS [Suspect]
     Indication: HEPATITIS C
     Dosage: DF SC
     Route: 058

REACTIONS (11)
  - ABDOMINAL PAIN [None]
  - ANAEMIA [None]
  - CHEST PAIN [None]
  - CYSTITIS [None]
  - DEHYDRATION [None]
  - HEADACHE [None]
  - INCONTINENCE [None]
  - NEUTROPENIA [None]
  - OESOPHAGEAL PAIN [None]
  - SINUSITIS [None]
  - WEIGHT DECREASED [None]
